FAERS Safety Report 16378213 (Version 2)
Quarter: 2019Q2

REPORT INFORMATION
  Report Type: Spontaneous
  Country: JP (occurrence: JP)
  Receive Date: 20190531
  Receipt Date: 20190626
  Transmission Date: 20190711
  Serious: Yes (Death, Other)
  Sender: FDA-Public Use
  Company Number: JP-BRISTOL-MYERS SQUIBB COMPANY-BMS-2019-052033

PATIENT
  Age: 78 Year
  Sex: Female

DRUGS (2)
  1. OPDIVO [Suspect]
     Active Substance: NIVOLUMAB
     Indication: HEAD AND NECK CANCER
     Dosage: 100 MG, Q2W
     Route: 041
     Dates: start: 20171228, end: 20180309
  2. PREDONINE [Suspect]
     Active Substance: PREDNISOLONE
     Indication: PNEUMONIA BACTERIAL
     Dosage: 1 DOSAGE FORM = 5-40MG, QD
     Route: 065
     Dates: start: 20180530, end: 20180614

REACTIONS (2)
  - Hyperglycaemia [Not Recovered/Not Resolved]
  - Pneumonia bacterial [Fatal]

NARRATIVE: CASE EVENT DATE: 20180524
